FAERS Safety Report 25628461 (Version 1)
Quarter: 2025Q3

REPORT INFORMATION
  Report Type: Spontaneous
  Country: US (occurrence: US)
  Receive Date: 20250731
  Receipt Date: 20250731
  Transmission Date: 20251021
  Serious: No
  Sender: Alora Pharma
  Company Number: US-VERTICAL PHARMACEUTICALS-2025ALO00047

PATIENT
  Age: 65 Year
  Sex: Female

DRUGS (2)
  1. ESTRADIOL [Suspect]
     Active Substance: ESTRADIOL
     Indication: Menopause
     Dosage: UNK, ONCE NIGHTLY
     Route: 065
     Dates: start: 20240101, end: 20240301
  2. ESTRADIOL [Suspect]
     Active Substance: ESTRADIOL
     Indication: Hysterectomy

REACTIONS (1)
  - Drug ineffective [Recovered/Resolved]

NARRATIVE: CASE EVENT DATE: 20240101
